FAERS Safety Report 5371889-7 (Version None)
Quarter: 2007Q2

REPORT INFORMATION
  Report Type: 
  Country: None (occurrence: None)
  Receive Date: 20070627
  Receipt Date: 20070618
  Transmission Date: 20071010
  Serious: Yes (Other)
  Sender: FDA-Public Use
  Company Number: US-JNJFOC-20070506762

PATIENT
  Sex: Male
  Weight: 13 kg

DRUGS (14)
  1. ULTRAM [Suspect]
     Indication: NEUROPATHY PERIPHERAL
     Route: 048
  2. CHLORAL HYDRATE [Concomitant]
     Dosage: 22-MAY TO 25-MAY GT EVERY 6 AS NEEDED  2 DOSES ON 25-MAY AND 24-MAY
  3. AMITRIPTYLINE HCL [Concomitant]
     Dosage: 23-MAY TO 25-MAY  AT BEDTIME
     Route: 048
  4. TYLENOL [Concomitant]
     Dosage: 23-MAY TO 25-MAY  EVERY 6.
     Route: 048
  5. ZYRTEC [Concomitant]
     Dosage: 22-MAY TO 25-MAY  GT EVERY DAY
     Route: 065
  6. CLONIDINE [Concomitant]
     Dosage: 22-MAY TO 25-MAY  GT AM-PM, 50UG EVERY AFTERNOON
     Route: 065
  7. CYPROHEPTADINE HCL [Concomitant]
     Dosage: GT
     Route: 065
  8. DIAZEPAM [Concomitant]
     Dosage: 24-MAY TO 25-MAY  GT EVERY 4'
     Route: 065
  9. DIAZEPAM [Concomitant]
     Dosage: 22-MAY TO 24-MAY  EVERY 4'
     Route: 065
  10. GABAPENTIN [Concomitant]
     Dosage: 22-MAY TO 25-MAY  GT EVERY 3'
     Route: 065
  11. IBUPROFEN [Concomitant]
     Dosage: 22-MAY TO 25-MAY  GT EVERY 8'
     Route: 065
  12. ZANTAC [Concomitant]
     Dosage: 22-MAY TO 25-MAY  GT
     Route: 065
  13. ZONEGRAN [Concomitant]
     Dosage: 23-MAY TO 25-MAY
     Route: 048
  14. PREVACID [Concomitant]
     Dosage: 22-MAY TO 25-MAY  GT
     Route: 065

REACTIONS (2)
  - RESPIRATORY DEPRESSION [None]
  - UNRESPONSIVE TO STIMULI [None]
